FAERS Safety Report 10597347 (Version 1)
Quarter: 2014Q4

REPORT INFORMATION
  Report Type: Spontaneous
  Country: US (occurrence: None)
  Receive Date: 20141120
  Receipt Date: 20141120
  Transmission Date: 20150529
  Serious: Yes (Other)
  Sender: FDA-Public Use
  Company Number: None

PATIENT
  Age: 59 Year
  Sex: Female

DRUGS (1)
  1. TASIGNA [Suspect]
     Active Substance: NILOTINIB
     Indication: OESOPHAGEAL CARCINOMA
     Dosage: 200MG ONCE DAILY BY MOUTH
     Route: 048
     Dates: start: 20140829, end: 20141119

REACTIONS (1)
  - Disease progression [None]

NARRATIVE: CASE EVENT DATE: 20141119
